FAERS Safety Report 10176272 (Version 3)
Quarter: 2020Q2

REPORT INFORMATION
  Report Type: Spontaneous
  Country: US (occurrence: US)
  Receive Date: 20140516
  Receipt Date: 20200618
  Transmission Date: 20200713
  Serious: No
  Sender: FDA-Public Use
  Company Number: US-PFIZER INC-2014133509

PATIENT
  Age: 61 Year
  Sex: Female
  Weight: 49.9 kg

DRUGS (2)
  1. PREMARIN [Suspect]
     Active Substance: ESTROGENS, CONJUGATED
     Dosage: 0.625 MG, 1X/DAY
     Route: 048
  2. PREMARIN [Suspect]
     Active Substance: ESTROGENS, CONJUGATED
     Indication: HYSTERECTOMY
     Dosage: 0.625 MG, CYCLIC (EVERY DAY FOR 21 CONSECUTIVE DAYS,FOLLOWED BY 7 DAYS OFF)
     Route: 048

REACTIONS (5)
  - Pain [Unknown]
  - Off label use [Unknown]
  - Hot flush [Unknown]
  - Irritability [Unknown]
  - Product use in unapproved indication [Unknown]
